FAERS Safety Report 14840103 (Version 1)
Quarter: 2018Q2

REPORT INFORMATION
  Report Type: Spontaneous
  Country: DE (occurrence: DE)
  Receive Date: 20180503
  Receipt Date: 20180503
  Transmission Date: 20180711
  Serious: Yes (Hospitalization)
  Sender: FDA-Public Use
  Company Number: DE-CONCORDIA PHARMACEUTICALS INC.-E2B_00011518

PATIENT
  Age: 66 Year
  Sex: Male

DRUGS (16)
  1. INSULIN DETEMIR [Concomitant]
     Active Substance: INSULIN DETEMIR
     Dosage: 100 IE, NACH SCHEMA, INJEKTIONS-/INFUSIONSL?SUNG
     Route: 058
  2. METAMIZOL [Concomitant]
     Active Substance: METAMIZOLE SODIUM
     Dosage: 500 MG, BEDARF, TABLETTEN
     Route: 048
  3. FUROSEMID [Concomitant]
     Active Substance: FUROSEMIDE
     Dosage: 250 MG, 1-1-0-0, TABLETTEN
     Route: 048
  4. CANDESARTAN. [Concomitant]
     Active Substance: CANDESARTAN
     Dosage: 8 MG, 1-0-0.5-0, TABLETTEN
     Route: 048
  5. TILIDIN/NALOXON [Concomitant]
     Dosage: 50|4 MG, 1-0-1-0, TABLETTEN
     Route: 048
  6. MAGNETRANS 375MG ULTRA [Concomitant]
     Dosage: 375 MG, 1-0-1-0, KAPSELN
     Route: 048
  7. PANTOPRAZOL [Concomitant]
     Active Substance: PANTOPRAZOLE SODIUM
     Dosage: 40 MG, 1-0-0-0, TABLETTEN
     Route: 048
  8. PREDNISOLONE. [Suspect]
     Active Substance: PREDNISOLONE
     Dosage: 50 MG, NACH SCHEMA, TABLETTEN
     Route: 048
  9. SPIRONOLACTON [Concomitant]
     Active Substance: SPIRONOLACTONE
     Dosage: 25 MG, 1-0-0-0, TABLETTEN
     Route: 048
  10. ISOSORBIDMONONITRAT [Concomitant]
     Dosage: 50 MG, 1-0-0-0, TABLETTEN
     Route: 048
  11. METOPROLOL. [Concomitant]
     Active Substance: METOPROLOL
     Dosage: 47.5 MG, 1-0-1-0, TABLETTEN
     Route: 048
  12. INSULIN ASPART [Concomitant]
     Active Substance: INSULIN ASPART
     Dosage: 100 IE, NACH SCHEMA, INJEKTIONS-/INFUSIONSL?SUNG
     Route: 058
  13. DAPAGLIFLOZIN. [Concomitant]
     Active Substance: DAPAGLIFLOZIN
     Dosage: 10 MG, 1-0-0-0, TABLETTEN
     Route: 048
  14. IVABRADIN [Concomitant]
     Dosage: 5 MG, 1-0-1-0, TABLETTEN
     Route: 048
  15. CALCITRIOL. [Concomitant]
     Active Substance: CALCITRIOL
     Dosage: 0.5 ?G, 0-1-0-0, TABLETTEN
     Route: 048
  16. RIVAROXABAN [Concomitant]
     Active Substance: RIVAROXABAN
     Dosage: 15 MG, 0-0-1-0, TABLETTEN
     Route: 048

REACTIONS (3)
  - Gout [Unknown]
  - Hyperglycaemia [Unknown]
  - Pain in extremity [Unknown]
